FAERS Safety Report 19801738 (Version 1)
Quarter: 2021Q3

REPORT INFORMATION
  Report Type: Spontaneous
  Country: GB (occurrence: GB)
  Receive Date: 20210908
  Receipt Date: 20210908
  Transmission Date: 20211014
  Serious: Yes (Hospitalization)
  Sender: FDA-Public Use
  Company Number: GB-BIOGEN-2021BI01046062

PATIENT
  Sex: Female

DRUGS (1)
  1. TECFIDERA [Suspect]
     Active Substance: DIMETHYL FUMARATE
     Indication: MULTIPLE SCLEROSIS
     Dosage: MAINTENANCE DOSE
     Route: 048
     Dates: start: 201601

REACTIONS (6)
  - Cholecystitis infective [Unknown]
  - Pruritus [Unknown]
  - Vascular rupture [Unknown]
  - Liver disorder [Unknown]
  - Vomiting [Unknown]
  - Erythema [Unknown]
